FAERS Safety Report 23713453 (Version 1)
Quarter: 2024Q2

REPORT INFORMATION
  Report Type: Spontaneous
  Country: US (occurrence: None)
  Receive Date: 20240405
  Receipt Date: 20240405
  Transmission Date: 20240716
  Serious: Yes (Death)
  Sender: FDA-Public Use
  Company Number: None

PATIENT
  Sex: Male

DRUGS (11)
  1. LUPRON DEPOT [Suspect]
     Active Substance: LEUPROLIDE ACETATE
     Dosage: FREQ: INJECT 30 MG IN THE MUSCLE EVERY 4 MONTHS
     Route: 030
     Dates: start: 20220809
  2. ATENOLOL [Concomitant]
  3. DILTIAZEM [Concomitant]
     Active Substance: DILTIAZEM
  4. FARXIGA [Concomitant]
  5. GLYBURIDE [Concomitant]
  6. HYDRALAZINE [Concomitant]
     Active Substance: HYDRALAZINE HYDROCHLORIDE
  7. JANUVIA [Concomitant]
  8. LIPITOR [Concomitant]
  9. lisnopril [Concomitant]
  10. METFORMIN [Concomitant]
  11. TIMOLOL [Concomitant]

REACTIONS (1)
  - Death [None]
